FAERS Safety Report 4333225-4 (Version None)
Quarter: 2004Q2

REPORT INFORMATION
  Report Type: 
  Country: None (occurrence: None)
  Receive Date: 20040405
  Receipt Date: 20040405
  Transmission Date: 20050107
  Serious: Yes (Disabling)
  Sender: FDA-Public Use
  Company Number: None

PATIENT
  Age: 65 Year
  Sex: Male
  Weight: 113.8529 kg

DRUGS (1)
  1. ADVAIR DISKUS 100/50 [Suspect]
     Indication: COUGH
     Dosage: 1 PUFF TWICE /DAY ORAL
     Route: 048
     Dates: start: 20040114, end: 20040122

REACTIONS (2)
  - DYSPHONIA [None]
  - MUSCLE TIGHTNESS [None]
